FAERS Safety Report 21446064 (Version 1)
Quarter: 2022Q4

REPORT INFORMATION
  Report Type: Spontaneous
  Country: US (occurrence: None)
  Receive Date: 20221011
  Receipt Date: 20221011
  Transmission Date: 20230112
  Serious: Yes (Other)
  Sender: FDA-Public Use
  Company Number: None

PATIENT
  Age: 77 Year
  Sex: Female
  Weight: 56.7 kg

DRUGS (7)
  1. TYMLOS [Suspect]
     Active Substance: ABALOPARATIDE
     Indication: Osteoporosis
     Dates: start: 20210210, end: 20221008
  2. STATIN [Concomitant]
  3. PREM PRO [Concomitant]
  4. PROZAC [Concomitant]
     Active Substance: FLUOXETINE HYDROCHLORIDE
  5. FOLATE SODIUM [Concomitant]
     Active Substance: FOLATE SODIUM
  6. VITAMIN D [Concomitant]
     Active Substance: VITAMIN D NOS
  7. CALCIUM [Concomitant]

REACTIONS (6)
  - Headache [None]
  - Chills [None]
  - Vomiting [None]
  - Back pain [None]
  - Chest pain [None]
  - Fatigue [None]

NARRATIVE: CASE EVENT DATE: 20221007
